FAERS Safety Report 6680107-9 (Version None)
Quarter: 2010Q2

REPORT INFORMATION
  Report Type: 
  Country: None (occurrence: None)
  Receive Date: 20100413
  Receipt Date: 20100408
  Transmission Date: 20101027
  Serious: Yes (Death, Hospitalization)
  Sender: FDA-Public Use
  Company Number: PHEH2009US05535

PATIENT
  Age: 59 Year
  Sex: Male

DRUGS (7)
  1. AFINITOR [Suspect]
     Indication: RENAL CELL CARCINOMA
     Dosage: UNK
     Route: 048
     Dates: start: 20090515, end: 20090515
  2. ALLOPURINOL [Concomitant]
     Dosage: UNK
     Dates: start: 20090501
  3. TRAMADOL HCL [Concomitant]
     Dosage: 50 MG, PRN
  4. COLACE [Concomitant]
     Dosage: 100 MG, BID
  5. SENNA [Concomitant]
     Dosage: 17.2 MG, BID
  6. ZOLOFT [Concomitant]
     Dosage: 25 MG DAILY
  7. REGLAN [Concomitant]
     Dosage: 5 MG QACHS

REACTIONS (11)
  - DYSPHAGIA [None]
  - ENDOTRACHEAL INTUBATION [None]
  - HYPOXIA [None]
  - INTESTINAL STENT INSERTION [None]
  - LIVER FUNCTION TEST ABNORMAL [None]
  - MALIGNANT NEOPLASM PROGRESSION [None]
  - MECHANICAL VENTILATION [None]
  - PYREXIA [None]
  - RESPIRATORY FAILURE [None]
  - SEPTIC SHOCK [None]
  - WHITE BLOOD CELL COUNT INCREASED [None]
